FAERS Safety Report 25598316 (Version 1)
Quarter: 2025Q3

REPORT INFORMATION
  Report Type: Spontaneous
  Country: AU (occurrence: AU)
  Receive Date: 20250723
  Receipt Date: 20250723
  Transmission Date: 20251021
  Serious: Yes (Hospitalization)
  Sender: GE HEALTHCARE
  Company Number: AU-GE HEALTHCARE-2025CSU009671

PATIENT
  Age: 61 Year
  Sex: Female

DRUGS (1)
  1. OMNIPAQUE [Suspect]
     Active Substance: IOHEXOL
     Indication: Mammogram
     Route: 042
     Dates: start: 20250718, end: 20250718

REACTIONS (4)
  - Sneezing [Recovered/Resolved]
  - Dizziness [Unknown]
  - Throat irritation [Recovered/Resolved]
  - Nasal pruritus [Unknown]

NARRATIVE: CASE EVENT DATE: 20250718
